FAERS Safety Report 10073433 (Version 2)
Quarter: 2014Q2

REPORT INFORMATION
  Report Type: Spontaneous
  Country: US (occurrence: US)
  Receive Date: 20140411
  Receipt Date: 20140411
  Transmission Date: 20141212
  Serious: Yes (Hospitalization, Other)
  Sender: FDA-Public Use
  Company Number: US-ABBVIE-13P-163-1038390-00

PATIENT
  Sex: Male
  Weight: 118.95 kg

DRUGS (2)
  1. ANDROGEL [Suspect]
     Indication: HYPOGONADISM
     Dosage: 5 G PACKET
     Route: 061
     Dates: start: 20120323, end: 20120907
  2. COUMADIN [Concomitant]
     Indication: MITRAL VALVE REPLACEMENT

REACTIONS (4)
  - Deep vein thrombosis [Recovered/Resolved]
  - Weight increased [Recovered/Resolved]
  - Oedema [Unknown]
  - Right ventricular failure [Recovered/Resolved]
